FAERS Safety Report 7816478-7 (Version None)
Quarter: 2011Q4

REPORT INFORMATION
  Report Type: 
  Country: None (occurrence: None)
  Receive Date: 20111017
  Receipt Date: 20111007
  Transmission Date: 20120403
  Serious: Yes (Hospitalization)
  Sender: FDA-Public Use
  Company Number: US-JNJFOC-20111003975

PATIENT
  Sex: Male
  Weight: 99.79 kg

DRUGS (10)
  1. DURAGESIC-100 [Suspect]
     Indication: BACK PAIN
     Route: 062
     Dates: start: 20000101
  2. NEURONTIN [Concomitant]
     Route: 048
  3. METOCLOPRAMIDE [Concomitant]
     Indication: GASTRIC DISORDER
     Route: 048
  4. EFFEXOR XR [Concomitant]
     Route: 048
  5. CLARITIN [Concomitant]
     Route: 048
  6. NEXIUM [Concomitant]
     Indication: GASTRIC DISORDER
     Route: 048
  7. RAPAFLO [Concomitant]
     Indication: URINE ABNORMALITY
     Route: 048
  8. DURAGESIC-100 [Suspect]
     Route: 062
     Dates: start: 20110901
  9. FENTANYL-100 [Suspect]
     Indication: BACK PAIN
     Route: 062
     Dates: end: 20110901
  10. WELLBUTRIN XL [Concomitant]
     Route: 048

REACTIONS (5)
  - DRUG INEFFECTIVE [None]
  - SKIN DISCOLOURATION [None]
  - ARTERIAL THROMBOSIS LIMB [None]
  - ONYCHOMADESIS [None]
  - AGITATION [None]
